FAERS Safety Report 23293139 (Version 2)
Quarter: 2024Q1

REPORT INFORMATION
  Report Type: Spontaneous
  Country: MX (occurrence: MX)
  Receive Date: 20231213
  Receipt Date: 20240118
  Transmission Date: 20240410
  Serious: Yes (Other)
  Sender: FDA-Public Use
  Company Number: MX-BAYER-2023A178967

PATIENT
  Age: 78 Year
  Sex: Female

DRUGS (3)
  1. NEXAVAR [Suspect]
     Active Substance: SORAFENIB
     Indication: Papillary thyroid cancer
     Dosage: 400 MG, BID
     Dates: start: 20230927, end: 20231011
  2. NEXAVAR [Suspect]
     Active Substance: SORAFENIB
     Indication: Metastases to lymph nodes
  3. NEXAVAR [Suspect]
     Active Substance: SORAFENIB
     Indication: Metastases to lung

REACTIONS (4)
  - Pruritus [Unknown]
  - Asthenia [Unknown]
  - Pain in extremity [Unknown]
  - Stomatitis [Unknown]
